FAERS Safety Report 6010357-6 (Version None)
Quarter: 2008Q4

REPORT INFORMATION
  Report Type: 
  Country: None (occurrence: None)
  Receive Date: 20081217
  Receipt Date: 20081217
  Transmission Date: 20090506
  Serious: No
  Sender: FDA-Public Use
  Company Number: None

PATIENT
  Sex: Female
  Weight: 61.2356 kg

DRUGS (1)
  1. FLUOXETINE [Suspect]
     Indication: DEPRESSION
     Dosage: 20 MG ONCE ALT TWICE QD PO
     Route: 048
     Dates: start: 20070501, end: 20070801

REACTIONS (4)
  - BLINDNESS TRANSIENT [None]
  - DEAFNESS TRANSITORY [None]
  - FEELING ABNORMAL [None]
  - PARAESTHESIA [None]
